FAERS Safety Report 4373240-8 (Version None)
Quarter: 2004Q2

REPORT INFORMATION
  Report Type: 
  Country: None (occurrence: None)
  Receive Date: 20040608
  Receipt Date: 20040604
  Transmission Date: 20050107
  Serious: Yes (Other)
  Sender: FDA-Public Use
  Company Number: 8006342

PATIENT
  Age: 21 Year
  Sex: Female
  Weight: 57.7 kg

DRUGS (3)
  1. LAMICTAL [Suspect]
     Indication: CONVULSION
     Dosage: 4TAB TWICE PER DAY
     Route: 048
     Dates: start: 19880101
  2. KEPPRA [Suspect]
     Dosage: 1500MG PER DAY
  3. XENICAL [Suspect]
     Indication: WEIGHT CONTROL

REACTIONS (4)
  - DRUG EFFECT DECREASED [None]
  - DRUG INTERACTION [None]
  - GRAND MAL CONVULSION [None]
  - WEIGHT INCREASED [None]
